FAERS Safety Report 22699006 (Version 10)
Quarter: 2024Q3

REPORT INFORMATION
  Report Type: Report from Study
  Country: GB (occurrence: GB)
  Receive Date: 20230713
  Receipt Date: 20240717
  Transmission Date: 20241016
  Serious: Yes (Hospitalization, Other)
  Sender: UCB
  Company Number: GB-UCBSA-2023034821

PATIENT
  Sex: Female

DRUGS (2)
  1. CERTOLIZUMAB PEGOL [Suspect]
     Active Substance: CERTOLIZUMAB PEGOL
     Indication: Rheumatoid arthritis
     Dosage: 200 MILLIGRAM, EV 2 WEEKS(QOW)
     Route: 058
     Dates: end: 20240514
  2. METHOTREXATE [Concomitant]
     Active Substance: METHOTREXATE
     Indication: Product used for unknown indication
     Dosage: UNK

REACTIONS (19)
  - Lower respiratory tract infection [Unknown]
  - Hospitalisation [Unknown]
  - Haemoglobin abnormal [Not Recovered/Not Resolved]
  - Transfusion [Unknown]
  - Rheumatoid arthritis [Unknown]
  - Laryngeal operation [Not Recovered/Not Resolved]
  - Laryngeal web [Not Recovered/Not Resolved]
  - Gastrointestinal haemorrhage [Unknown]
  - Haematochezia [Unknown]
  - Injection site pain [Unknown]
  - Injection site discomfort [Unknown]
  - Fatigue [Unknown]
  - Peripheral swelling [Not Recovered/Not Resolved]
  - Feeding disorder [Not Recovered/Not Resolved]
  - Influenza [Unknown]
  - COVID-19 [Unknown]
  - Injection site bruising [Unknown]
  - Product dose omission issue [Unknown]
  - Device difficult to use [Unknown]

NARRATIVE: CASE EVENT DATE: 20230101
